FAERS Safety Report 8354772-4 (Version None)
Quarter: 2012Q2

REPORT INFORMATION
  Report Type: 
  Country: None (occurrence: None)
  Receive Date: 20120511
  Receipt Date: 20120505
  Transmission Date: 20120825
  Serious: Yes (Hospitalization, Other)
  Sender: FDA-Public Use
  Company Number: US-BAYER-2011-006876

PATIENT
  Age: 30 Year
  Sex: Female

DRUGS (4)
  1. YAZ [Suspect]
     Dosage: UNK
     Dates: start: 20071001, end: 20080401
  2. VITAMIN C [Concomitant]
     Indication: GENERAL PHYSICAL HEALTH DETERIORATION
  3. MOTRIN [Concomitant]
     Indication: HEADACHE
  4. CALCIUM [Concomitant]
     Indication: GENERAL PHYSICAL HEALTH DETERIORATION

REACTIONS (14)
  - PSYCHOLOGICAL TRAUMA [None]
  - VOMITING [None]
  - COLD SWEAT [None]
  - DEHYDRATION [None]
  - PAIN [None]
  - CHOLECYSTITIS CHRONIC [None]
  - INJURY [None]
  - SYNCOPE [None]
  - EMOTIONAL DISTRESS [None]
  - ANXIETY [None]
  - CHOLECYSTECTOMY [None]
  - FEAR [None]
  - NAUSEA [None]
  - CHOLELITHIASIS [None]
